FAERS Safety Report 13102332 (Version 2)
Quarter: 2017Q1

REPORT INFORMATION
  Report Type: Spontaneous
  Country: IT (occurrence: IT)
  Receive Date: 20170110
  Receipt Date: 20170118
  Transmission Date: 20170428
  Serious: Yes (Other)
  Sender: FDA-Public Use
  Company Number: IT-UCBSA-2017000514

PATIENT
  Sex: Male

DRUGS (5)
  1. AFINITOR [Concomitant]
     Active Substance: EVEROLIMUS
     Indication: PRODUCT USED FOR UNKNOWN INDICATION
     Dosage: 4 MG/M2 (5 MG DAILY AS MONOTHERAPY IN THE EVENING)
  2. OXCARBAZEPINE. [Concomitant]
     Active Substance: OXCARBAZEPINE
     Indication: COMPLEX PARTIAL SEIZURES
     Dosage: UNKNOWN DOSE
  3. LEVETIRACETAM. [Suspect]
     Active Substance: LEVETIRACETAM
     Indication: SEIZURE
     Dosage: UNKNOWN DOSE
  4. CARBAMAZEPINE. [Concomitant]
     Active Substance: CARBAMAZEPINE
     Indication: SEIZURE
     Dosage: UNKNOWN DOSE
  5. CLOBAZAM [Concomitant]
     Active Substance: CLOBAZAM
     Indication: COMPLEX PARTIAL SEIZURES
     Dosage: UNKNOWN DOSE

REACTIONS (9)
  - Seizure [Recovering/Resolving]
  - Speech disorder [Recovering/Resolving]
  - Hamartoma [Unknown]
  - Aphthous ulcer [Recovering/Resolving]
  - Aggression [Recovering/Resolving]
  - Cognitive disorder [Recovering/Resolving]
  - Psychomotor hyperactivity [Recovering/Resolving]
  - Drug resistance [Unknown]
  - Rhabdomyoma [Recovering/Resolving]

NARRATIVE: CASE EVENT DATE: 2014
